FAERS Safety Report 5134184-7 (Version None)
Quarter: 2006Q4

REPORT INFORMATION
  Report Type: 
  Country: None (occurrence: None)
  Receive Date: 20061019
  Receipt Date: 20061004
  Transmission Date: 20070319
  Serious: Yes (Other)
  Sender: FDA-Public Use
  Company Number: BR200610001136

PATIENT
  Age: 59 Year
  Sex: Male
  Weight: 130 kg

DRUGS (8)
  1. CYMBALTA [Suspect]
     Indication: DIABETIC NEUROPATHY
     Dosage: 60 MG, ORAL
     Route: 048
     Dates: start: 20060901
  2. LANTUS [Concomitant]
  3. CLAVULIN (AMOXICILLIN TRIHYDRATE, CLAVULANATE POTASSIUM) [Concomitant]
  4. INSULIN HUMAN (INSULIN HUMAN) [Concomitant]
  5. CAPTOPRIL (CAPTROPRIL) [Concomitant]
  6. FUROSEMIDE [Concomitant]
  7. OMEPRAZOLE [Concomitant]
  8. PROMETHAZINE [Concomitant]

REACTIONS (4)
  - HYPERTENSION [None]
  - RESPIRATORY FAILURE [None]
  - RESTLESS LEGS SYNDROME [None]
  - TACHYCARDIA [None]
